FAERS Safety Report 10242103 (Version 1)
Quarter: 2014Q2

REPORT INFORMATION
  Report Type: Spontaneous
  Country: FR (occurrence: FR)
  Receive Date: 20140617
  Receipt Date: 20140617
  Transmission Date: 20141212
  Serious: Yes (Disabling, Other)
  Sender: FDA-Public Use
  Company Number: FR-TEVA-487800ISR

PATIENT
  Age: 55 Year
  Sex: Female

DRUGS (1)
  1. TRAMADOL TEVA LP 150 MG [Suspect]
     Indication: BACK PAIN
     Dosage: 150 MILLIGRAM DAILY;
     Dates: start: 201401, end: 20140528

REACTIONS (6)
  - Somnolence [Recovered/Resolved]
  - Disturbance in attention [Recovered/Resolved]
  - Headache [Recovered/Resolved]
  - Abdominal pain [Recovered/Resolved]
  - Sensory loss [Recovered/Resolved]
  - Vomiting [Recovered/Resolved]
